FAERS Safety Report 8113790-1 (Version None)
Quarter: 2012Q1

REPORT INFORMATION
  Report Type: 
  Country: None (occurrence: None)
  Receive Date: 20120203
  Receipt Date: 20120201
  Transmission Date: 20120608
  Serious: Yes (Other)
  Sender: FDA-Public Use
  Company Number: GB-PFIZER INC-2012009013

PATIENT
  Age: 45 Year
  Sex: Female

DRUGS (2)
  1. LYRICA [Suspect]
     Dosage: 75 MG, 2X/DAY
  2. LYRICA [Suspect]
     Dosage: 300 MG, 2X/DAY
     Dates: start: 20120101

REACTIONS (3)
  - UTERINE CERVIX ULCER [None]
  - UTERINE DISORDER [None]
  - DRUG INEFFECTIVE [None]
